FAERS Safety Report 8836638 (Version 1)
Quarter: 2012Q4

REPORT INFORMATION
  Report Type: Spontaneous
  Country: TW (occurrence: None)
  Receive Date: 20121009
  Receipt Date: 20121009
  Transmission Date: 20130627
  Serious: Yes (Other)
  Sender: FDA-Public Use
  Company Number: TW-MACLEODS PHARMA-000012

PATIENT
  Age: 56 Year
  Sex: Male

DRUGS (1)
  1. FAMCICLOVIR [Suspect]
     Indication: SHINGLES
     Dosage: 3.00 times per -1.0 days
     Route: 048

REACTIONS (1)
  - Leukocytoclastic vasculitis [None]
